FAERS Safety Report 10362775 (Version 1)
Quarter: 2014Q1

REPORT INFORMATION
  Report Type: Spontaneous
  Country: US (occurrence: None)
  Receive Date: 20140306
  Receipt Date: 20140306
  Transmission Date: 20141002
  Serious: Yes (Other)
  Sender: FDA-Public Use
  Company Number: 163-21880-13060580

PATIENT
  Age: 76 Year
  Sex: Male

DRUGS (10)
  1. REVLIMID (LENALIDOMIDE) (10 MILLIGRAM, CAPSULES) [Suspect]
     Indication: PLASMA CELL MYELOMA
     Dosage: 10 MG , 21 IN 21 D, PO 10/24/2012 - UNKNOWN THERAPY DATE
     Route: 048
     Dates: start: 20121024
  2. ALKERAN [Concomitant]
  3. ALLOPURINOL [Concomitant]
  4. AMLODIPINE BESYLATE [Concomitant]
  5. BISOPROLOL FUMARATE [Concomitant]
  6. CALTRATE (CALCIUM CARBONATE) [Concomitant]
  7. FINASTERIDE [Concomitant]
  8. HYDROCHLOROTHIAZIDE [Concomitant]
  9. LIPITOR (ATORVASTATIN) [Concomitant]
  10. LISINOPRIL [Concomitant]

REACTIONS (2)
  - Bone marrow failure [None]
  - Full blood count decreased [None]
